FAERS Safety Report 4611382-X (Version None)
Quarter: 2005Q2

REPORT INFORMATION
  Report Type: 
  Country: None (occurrence: None)
  Receive Date: 20050311
  Receipt Date: 20050124
  Transmission Date: 20051028
  Serious: No
  Sender: FDA-Public Use
  Company Number: 2005-BP-01159BP

PATIENT
  Age: 63 Year
  Sex: Female

DRUGS (10)
  1. SPIRIVA [Suspect]
     Indication: CHRONIC OBSTRUCTIVE PULMONARY DISEASE
     Dosage: 18 MCG (18 MCG, 1 CAPSULE QD), IH
     Route: 055
     Dates: start: 20040101
  2. SPIRIVA [Suspect]
  3. SPIRIVA [Suspect]
  4. HYDROCODONE BITARTRATE + ACETAMINOPHEN [Concomitant]
  5. HYOSCYAMINE SULFATE AND PHENOBARBITAL [Concomitant]
  6. MOBIC [Concomitant]
  7. CARDIZEM LA [Concomitant]
  8. ALPRAZOLAM [Concomitant]
  9. HYDROCHLOROTHIAZIDE [Concomitant]
  10. FLUOXETINE [Concomitant]

REACTIONS (2)
  - DRUG INEFFECTIVE [None]
  - NAUSEA [None]
